FAERS Safety Report 16799769 (Version 1)
Quarter: 2019Q3

REPORT INFORMATION
  Report Type: Spontaneous
  Country: US (occurrence: US)
  Receive Date: 20190722
  Receipt Date: 20190722
  Transmission Date: 20191005
  Serious: No
  Sender: FDA-Public Use
  Company Number: None

PATIENT
  Age: 76 Year
  Sex: Female

DRUGS (1)
  1. AMBRISENTAN 10MG TABLETS 30/BO: 10MG [Suspect]
     Active Substance: AMBRISENTAN
     Indication: PULMONARY EMBOLISM
     Route: 048
     Dates: start: 20190627, end: 20190701

REACTIONS (4)
  - Palpitations [None]
  - Oxygen saturation decreased [None]
  - Haematocrit decreased [None]
  - Dyspnoea [None]

NARRATIVE: CASE EVENT DATE: 20190701
